FAERS Safety Report 8399161-1 (Version None)
Quarter: 2012Q2

REPORT INFORMATION
  Report Type: 
  Country: None (occurrence: None)
  Receive Date: 20120323
  Receipt Date: 20110825
  Transmission Date: 20120825
  Serious: Yes (Other)
  Sender: FDA-Public Use
  Company Number: 163-21880-11061696

PATIENT
  Age: 81 Year
  Sex: Female

DRUGS (16)
  1. REVLIMID [Suspect]
     Indication: MULTIPLE MYELOMA
     Dosage: 25 MG, DAILY X 21 DAYS, PO, 15-25 MG, DAILY X 21 DAYS, PO , 10 MG, DAILY X 21 DAYS, PO
     Route: 048
     Dates: start: 20100701
  2. REVLIMID [Suspect]
     Indication: MULTIPLE MYELOMA
     Dosage: 25 MG, DAILY X 21 DAYS, PO, 15-25 MG, DAILY X 21 DAYS, PO , 10 MG, DAILY X 21 DAYS, PO
     Route: 048
     Dates: start: 20100401
  3. REVLIMID [Suspect]
     Indication: MULTIPLE MYELOMA
     Dosage: 25 MG, DAILY X 21 DAYS, PO, 15-25 MG, DAILY X 21 DAYS, PO , 10 MG, DAILY X 21 DAYS, PO
     Route: 048
     Dates: start: 20110610
  4. FUROSEMIDE [Concomitant]
  5. ASPIRIN [Concomitant]
  6. BYSTOLIC [Concomitant]
  7. PRAVASTATIN [Concomitant]
  8. BENICAR [Concomitant]
  9. IRON (IRON) [Concomitant]
  10. GLIMEPIRIDE [Concomitant]
  11. PAROXETINE HCL [Concomitant]
  12. PACKED RED BLOOD CELLS (BLOOD AND RELATED PRODUCTS) [Concomitant]
  13. AZITHROMYCIN [Concomitant]
  14. VITAMIN D [Concomitant]
  15. AMLODIPINE [Concomitant]
  16. CLONIDINE [Concomitant]

REACTIONS (2)
  - ANAEMIA [None]
  - BONE MARROW FAILURE [None]
